FAERS Safety Report 17764062 (Version 3)
Quarter: 2020Q2

REPORT INFORMATION
  Report Type: Report from Study
  Country: None (occurrence: IT)
  Receive Date: 20200511
  Receipt Date: 20200605
  Transmission Date: 20200714
  Serious: Yes (Hospitalization)
  Sender: FDA-Public Use
  Company Number: IT-ABBVIE-20K-083-3398705-00

PATIENT
  Age: 84 Year
  Sex: Male

DRUGS (2)
  1. RITONAVIR. [Suspect]
     Active Substance: RITONAVIR
     Indication: CORONAVIRUS INFECTION
     Dosage: CUMULATIVE DOSE TO FIRST REACTION 200 MILLIGRAM
     Route: 048
     Dates: start: 20200320, end: 20200321
  2. DARUNAVIR [Suspect]
     Active Substance: DARUNAVIR
     Indication: CORONAVIRUS INFECTION
     Dosage: CUMULATIVE DOSE TO FIRST REACTION:1600 MILLIGRAM
     Route: 048
     Dates: start: 20200320, end: 20200321

REACTIONS (2)
  - Gamma-glutamyltransferase increased [Recovering/Resolving]
  - Hypertransaminasaemia [Recovering/Resolving]

NARRATIVE: CASE EVENT DATE: 20200321
